FAERS Safety Report 20341243 (Version 5)
Quarter: 2023Q1

REPORT INFORMATION
  Report Type: Report from Study
  Country: CA (occurrence: CA)
  Receive Date: 20220117
  Receipt Date: 20230118
  Transmission Date: 20230417
  Serious: Yes (Other)
  Sender: FDA-Public Use
  Company Number: CA-UCBSA-2021045031

PATIENT
  Age: 48 Year
  Sex: Male

DRUGS (9)
  1. CERTOLIZUMAB PEGOL [Suspect]
     Active Substance: CERTOLIZUMAB PEGOL
     Indication: Rheumatoid arthritis
     Dosage: 400 MILLIGRAM, EV 2 WEEKS(QOW)
     Route: 058
     Dates: start: 20210915
  2. CERTOLIZUMAB PEGOL [Suspect]
     Active Substance: CERTOLIZUMAB PEGOL
     Dosage: 400 MILLIGRAM, EV 4 WEEKS
     Route: 058
  3. CERTOLIZUMAB PEGOL [Suspect]
     Active Substance: CERTOLIZUMAB PEGOL
     Dosage: 400 MILLIGRAM, EV 2 WEEKS(QOW)
     Route: 058
     Dates: start: 2022
  4. ASPIRIN [Concomitant]
     Active Substance: ASPIRIN
     Indication: Product used for unknown indication
     Dosage: 80 MILLIGRAM
  5. LIPITOR [Concomitant]
     Active Substance: ATORVASTATIN CALCIUM
     Indication: Product used for unknown indication
     Dosage: UNK
  6. EFFEXOR [Concomitant]
     Active Substance: VENLAFAXINE HYDROCHLORIDE
     Indication: Product used for unknown indication
     Dosage: UNK
  7. MODERNA COVID-19 VACCINE [Concomitant]
     Active Substance: ELASOMERAN
     Indication: Immunisation
     Dosage: UNK
  8. METHOTREXATE [Concomitant]
     Active Substance: METHOTREXATE
     Indication: Product used for unknown indication
     Dosage: UNK
  9. PAXLOVID [Concomitant]
     Active Substance: NIRMATRELVIR\RITONAVIR
     Indication: COVID-19
     Dosage: 150-100 MG DRUG KIT

REACTIONS (21)
  - Pain [Recovering/Resolving]
  - Headache [Unknown]
  - Dizziness [Unknown]
  - Hypertension [Unknown]
  - Fatigue [Recovered/Resolved]
  - Nausea [Unknown]
  - Malaise [Unknown]
  - Injection site erythema [Unknown]
  - Ear infection [Recovered/Resolved]
  - Chills [Recovering/Resolving]
  - Movement disorder [Recovering/Resolving]
  - Nasal congestion [Recovered/Resolved]
  - Urinary tract infection [Unknown]
  - Oropharyngeal pain [Recovered/Resolved]
  - COVID-19 [Unknown]
  - General physical health deterioration [Unknown]
  - Vaccination complication [Unknown]
  - SARS-CoV-2 test negative [Unknown]
  - COVID-19 immunisation [Unknown]
  - SARS-CoV-2 test positive [Unknown]
  - Product use issue [Unknown]

NARRATIVE: CASE EVENT DATE: 20210901
